FAERS Safety Report 4629477-3 (Version None)
Quarter: 2005Q2

REPORT INFORMATION
  Report Type: 
  Country: None (occurrence: None)
  Receive Date: 20050405
  Receipt Date: 20050321
  Transmission Date: 20051028
  Serious: Yes (Death, Life-Threatening, Hospitalization)
  Sender: FDA-Public Use
  Company Number: 2004GB03153

PATIENT
  Age: 58 Year
  Sex: Male
  Weight: 97.5 kg

DRUGS (14)
  1. GEFITINIB [Suspect]
     Indication: NON-SMALL CELL LUNG CANCER
     Dosage: 250 MG QD PO
     Route: 048
     Dates: start: 20041208, end: 20041227
  2. OMEPRAZOLE [Concomitant]
  3. PREDNISOLONE [Concomitant]
  4. MST [Concomitant]
  5. FLUOXETINE [Concomitant]
  6. DIFFLAM [Concomitant]
  7. GABAPENTIN [Concomitant]
  8. ADCAL [Concomitant]
  9. FLUTICASONE PROPIONATE [Concomitant]
  10. SALMETEROL [Concomitant]
  11. COMBIVENT [Concomitant]
  12. ORAMORPH SR [Concomitant]
  13. ARCOXIA [Concomitant]
  14. CLARITHROMYCIN [Concomitant]

REACTIONS (10)
  - CHEST PAIN [None]
  - DIFFUSE ALVEOLAR DAMAGE [None]
  - GENERAL PHYSICAL HEALTH DETERIORATION [None]
  - LOWER RESPIRATORY TRACT INFECTION [None]
  - LUNG CONSOLIDATION [None]
  - PLEURITIC PAIN [None]
  - PNEUMONIA [None]
  - PRODUCTIVE COUGH [None]
  - RESPIRATORY FAILURE [None]
  - TACHYCARDIA [None]
